FAERS Safety Report 8006555-2 (Version None)
Quarter: 2011Q4

REPORT INFORMATION
  Report Type: 
  Country: None (occurrence: None)
  Receive Date: 20111227
  Receipt Date: 20111215
  Transmission Date: 20120403
  Serious: Yes (Hospitalization)
  Sender: FDA-Public Use
  Company Number: US-BRISTOL-MYERS SQUIBB COMPANY-16295594

PATIENT
  Age: 64 Year
  Sex: Male
  Weight: 92 kg

DRUGS (2)
  1. PREDNISONE [Concomitant]
  2. IPILIMUMAB [Suspect]
     Indication: MALIGNANT MELANOMA
     Dosage: LAST DOSE:15NOV11 10MG/KG OVER 90MIN, Q12 WEEKS ON WEEKS 24,36,48,60
     Route: 042
     Dates: start: 20110912

REACTIONS (2)
  - NAUSEA [None]
  - MUCOSAL INFECTION [None]
